FAERS Safety Report 13546570 (Version 1)
Quarter: 2017Q2

REPORT INFORMATION
  Report Type: Spontaneous
  Country: US (occurrence: US)
  Receive Date: 20170515
  Receipt Date: 20170515
  Transmission Date: 20170830
  Serious: No
  Sender: FDA-Public Use
  Company Number: US-VIFOR (INTERNATIONAL) INC.-VIT-2016-07565

PATIENT
  Age: 67 Year
  Sex: Male

DRUGS (8)
  1. FLUDROCORTISONE ACETATE. [Concomitant]
     Active Substance: FLUDROCORTISONE ACETATE
  2. ERGOCALCIFEROL. [Concomitant]
     Active Substance: ERGOCALCIFEROL
  3. RENVELA [Concomitant]
     Active Substance: SEVELAMER CARBONATE
  4. FUROSEMIDE. [Concomitant]
     Active Substance: FUROSEMIDE
  5. VELTASSA [Suspect]
     Active Substance: PATIROMER
     Indication: HYPERKALAEMIA
     Route: 048
     Dates: start: 20160329
  6. CARVEDILOL. [Concomitant]
     Active Substance: CARVEDILOL
  7. VALSARTAN. [Concomitant]
     Active Substance: VALSARTAN
  8. AMLODIPINE BESILATE [Concomitant]
     Active Substance: AMLODIPINE BESYLATE

REACTIONS (1)
  - Blood phosphorus increased [Not Recovered/Not Resolved]

NARRATIVE: CASE EVENT DATE: 20161019
